FAERS Safety Report 14132107 (Version 7)
Quarter: 2019Q2

REPORT INFORMATION
  Report Type: Spontaneous
  Country: JP (occurrence: JP)
  Receive Date: 20171027
  Receipt Date: 20190426
  Transmission Date: 20190711
  Serious: No
  Sender: FDA-Public Use
  Company Number: JP-ABBVIE-17K-087-1944842-00

PATIENT
  Age: 78 Year
  Sex: Female

DRUGS (1)
  1. DUODOPA [Suspect]
     Active Substance: CARBIDOPA\LEVODOPA
     Indication: PARKINSON^S DISEASE
     Route: 050
     Dates: start: 20170210

REACTIONS (16)
  - Gait disturbance [Unknown]
  - Bradykinesia [Unknown]
  - Device issue [Unknown]
  - Anxiety [Unknown]
  - Therapeutic product effect incomplete [Unknown]
  - On and off phenomenon [Unknown]
  - Musculoskeletal pain [Unknown]
  - Mobility decreased [Unknown]
  - Dyspnoea [Unknown]
  - Device use issue [Unknown]
  - Chest discomfort [Unknown]
  - Joint range of motion decreased [Unknown]
  - Drug ineffective [Unknown]
  - Parkinson^s disease [Unknown]
  - Stoma site discharge [Unknown]
  - Stoma site abscess [Unknown]

NARRATIVE: CASE EVENT DATE: 2017
